FAERS Safety Report 10070806 (Version 1)
Quarter: 2014Q2

REPORT INFORMATION
  Report Type: Other
  Country: US (occurrence: US)
  Receive Date: 20140410
  Receipt Date: 20140410
  Transmission Date: 20141212
  Serious: Yes (Death, Hospitalization)
  Sender: FDA-Public Use
  Company Number: US-ACTELION-A-CH2014-97373

PATIENT
  Age: 78 Year
  Sex: Female

DRUGS (3)
  1. TRACLEER [Suspect]
     Indication: PULMONARY ARTERIAL HYPERTENSION
     Route: 048
  2. SILDENAFIL [Concomitant]
  3. TREPROSTINIL [Concomitant]

REACTIONS (6)
  - Artery dissection [Fatal]
  - Arterial rupture [Fatal]
  - Cardio-respiratory arrest [Fatal]
  - Sudden death [Fatal]
  - Atrial fibrillation [Unknown]
  - Pulmonary artery dilatation [Unknown]
